FAERS Safety Report 19771654 (Version 7)
Quarter: 2022Q3

REPORT INFORMATION
  Report Type: Spontaneous
  Country: US (occurrence: US)
  Receive Date: 20210831
  Receipt Date: 20220726
  Transmission Date: 20221027
  Serious: Yes (Hospitalization, Other)
  Sender: FDA-Public Use
  Company Number: US-PFIZER INC-202101082671

PATIENT
  Age: 59 Year
  Sex: Female
  Weight: 69.841 kg

DRUGS (166)
  1. LIPITOR [Suspect]
     Active Substance: ATORVASTATIN CALCIUM
     Indication: Blood cholesterol increased
     Dosage: 20 MG, 1X/DAY
     Route: 048
  2. LIPITOR [Suspect]
     Active Substance: ATORVASTATIN CALCIUM
     Dosage: 20 MG, 1X/DAY
     Route: 048
     Dates: start: 20130816
  3. LIPITOR [Suspect]
     Active Substance: ATORVASTATIN CALCIUM
     Dosage: 20 MG, 1X/DAY
     Route: 048
     Dates: start: 20140606
  4. LIPITOR [Suspect]
     Active Substance: ATORVASTATIN CALCIUM
     Dosage: 20 MG, 1X/DAY
     Route: 048
     Dates: start: 20140806
  5. LIPITOR [Suspect]
     Active Substance: ATORVASTATIN CALCIUM
     Dosage: 20 MG, 1X/DAY
     Route: 048
     Dates: start: 20140903
  6. LIPITOR [Suspect]
     Active Substance: ATORVASTATIN CALCIUM
     Dosage: 20 MG, 1X/DAY
     Route: 048
     Dates: start: 20150826
  7. LIPITOR [Suspect]
     Active Substance: ATORVASTATIN CALCIUM
     Dosage: 20 MG, 1X/DAY
     Route: 048
     Dates: start: 20210111
  8. AMLODIPINE BESYLATE [Concomitant]
     Active Substance: AMLODIPINE BESYLATE
     Dosage: 5 MG, 1X/DAY
     Route: 048
     Dates: start: 20210226
  9. AMLODIPINE BESYLATE [Concomitant]
     Active Substance: AMLODIPINE BESYLATE
     Dosage: 5 MG, 1X/DAY
     Route: 048
     Dates: start: 20210311
  10. ASPIRIN [Concomitant]
     Active Substance: ASPIRIN
     Dosage: 81 MG, 1X/DAY
     Route: 048
     Dates: start: 20171108
  11. ASPIRIN [Concomitant]
     Active Substance: ASPIRIN
     Dosage: 81 MG, 1X/DAY
     Route: 048
     Dates: start: 20171212
  12. ASPIRIN [Concomitant]
     Active Substance: ASPIRIN
     Dosage: 81 MG, 1X/DAY
     Route: 048
     Dates: start: 20180118
  13. ASPIRIN [Concomitant]
     Active Substance: ASPIRIN
     Dosage: 81 MG, 1X/DAY
     Route: 048
     Dates: start: 20180220
  14. ASPIRIN [Concomitant]
     Active Substance: ASPIRIN
     Dosage: 81 MG
  15. AZITHROMYCIN [Concomitant]
     Active Substance: AZITHROMYCIN
     Dosage: 500 MG, 1X/DAY
     Route: 048
     Dates: start: 20170511
  16. AMOXICILLIN [Concomitant]
     Active Substance: AMOXICILLIN
     Dosage: 500 MG (TAKE 1 TABLET BY MOUTH EVERY 8 HOURS UNTIL FINISHED)
     Route: 048
     Dates: start: 20170915
  17. ACETAMINOPHEN [Concomitant]
     Active Substance: ACETAMINOPHEN
     Indication: Pain
     Dosage: UNK (TAKE 1 TABLET BY MOUTH EVERY 4 TO 6 HOURS IF NEEDED)
     Route: 048
     Dates: start: 20170915
  18. CARVEDILOL [Concomitant]
     Active Substance: CARVEDILOL
     Dosage: 3.125 MG (TAKE ONE TABLET BY MOUTH)
     Route: 048
     Dates: start: 20151013
  19. CARVEDILOL [Concomitant]
     Active Substance: CARVEDILOL
     Dosage: 3.125 MG (TAKE ONE TABLET BY MOUTH)
     Route: 048
     Dates: start: 20151119
  20. CARVEDILOL [Concomitant]
     Active Substance: CARVEDILOL
     Dosage: 3.125 MG (TAKE ONE TABLET BY MOUTH)
     Route: 048
     Dates: start: 20210111
  21. CARVEDILOL [Concomitant]
     Active Substance: CARVEDILOL
     Dosage: 6.25 MG, 2X/DAY
     Route: 048
     Dates: start: 20210114
  22. CICLOPIROX [Concomitant]
     Active Substance: CICLOPIROX
     Dosage: UNK, 2X/DAY
     Dates: start: 20190131
  23. CICLOPIROX [Concomitant]
     Active Substance: CICLOPIROX
     Dosage: UNK, 2X/DAY (APPLY TO AFFECTED AREA)
     Dates: start: 20190329
  24. CIPROFLOXACIN HYDROCHLORIDE [Concomitant]
     Active Substance: CIPROFLOXACIN HYDROCHLORIDE
     Dosage: 500 MG, 2X/DAY
     Route: 048
     Dates: start: 20200911
  25. CEPHALEXIN [Concomitant]
     Active Substance: CEPHALEXIN
     Dosage: 500 MG, 2X/DAY
     Route: 048
     Dates: start: 20160526
  26. CEPHALEXIN [Concomitant]
     Active Substance: CEPHALEXIN
     Dosage: 500 MG, 4X/DAY
     Route: 048
     Dates: start: 20200908
  27. CEPHALEXIN [Concomitant]
     Active Substance: CEPHALEXIN
     Dosage: 500 MG, 4X/DAY
     Route: 048
     Dates: start: 20210901
  28. GLIPIZIDE [Concomitant]
     Active Substance: GLIPIZIDE
     Dosage: 10 MG, 2X/DAY
     Route: 048
     Dates: start: 20210217
  29. EZETIMIBE [Concomitant]
     Active Substance: EZETIMIBE
     Dosage: 10 MG, 1X/DAY
     Route: 048
     Dates: start: 20190417
  30. EZETIMIBE [Concomitant]
     Active Substance: EZETIMIBE
     Dosage: 10 MG, 1X/DAY
     Route: 048
     Dates: start: 20190812
  31. FML FORTE [Concomitant]
     Active Substance: FLUOROMETHOLONE
     Dosage: UNK, 2X/DAY (PLACE 1 DROP INTO BOTH EYES)
     Dates: start: 20190809
  32. FML FORTE [Concomitant]
     Active Substance: FLUOROMETHOLONE
     Dosage: UNK, 2X/DAY (PLACE 1 DROP INTO BOTH EYES)
     Dates: start: 20191005
  33. JARDIANCE [Concomitant]
     Active Substance: EMPAGLIFLOZIN
     Dosage: 10 MG, 1X/DAY
     Route: 048
     Dates: start: 20190405
  34. JARDIANCE [Concomitant]
     Active Substance: EMPAGLIFLOZIN
     Dosage: 25 MG, 1X/DAY
     Route: 048
     Dates: start: 20190517
  35. JARDIANCE [Concomitant]
     Active Substance: EMPAGLIFLOZIN
     Dosage: 25 MG, 1X/DAY
     Route: 048
     Dates: start: 20190813
  36. JARDIANCE [Concomitant]
     Active Substance: EMPAGLIFLOZIN
     Dosage: 25 MG, 1X/DAY
     Route: 048
     Dates: start: 20191122
  37. JARDIANCE [Concomitant]
     Active Substance: EMPAGLIFLOZIN
     Dosage: 25 MG, 1X/DAY
     Route: 048
     Dates: start: 20200219
  38. JARDIANCE [Concomitant]
     Active Substance: EMPAGLIFLOZIN
     Dosage: 25 MG, 1X/DAY
     Route: 048
     Dates: start: 20201028
  39. JARDIANCE [Concomitant]
     Active Substance: EMPAGLIFLOZIN
     Dosage: 25 MG, 1X/DAY
     Route: 048
     Dates: start: 20210113
  40. JARDIANCE [Concomitant]
     Active Substance: EMPAGLIFLOZIN
     Dosage: 25 MG, 1X/DAY
     Route: 048
     Dates: start: 20210218
  41. LISINOPRIL [Concomitant]
     Active Substance: LISINOPRIL
     Dosage: 5 MG, 1X/DAY
     Route: 048
     Dates: start: 20171004
  42. LISINOPRIL [Concomitant]
     Active Substance: LISINOPRIL
     Dosage: 5 MG, 1X/DAY
     Route: 048
     Dates: start: 20171204
  43. LISINOPRIL [Concomitant]
     Active Substance: LISINOPRIL
     Dosage: 10 MG, 1X/DAY
     Route: 048
     Dates: start: 20180116
  44. LISINOPRIL [Concomitant]
     Active Substance: LISINOPRIL
     Dosage: 40 MG, 1X/DAY
     Route: 048
     Dates: start: 20180206
  45. LISINOPRIL [Concomitant]
     Active Substance: LISINOPRIL
     Dosage: 40 MG, 1X/DAY
     Route: 048
     Dates: start: 20180314
  46. LISINOPRIL [Concomitant]
     Active Substance: LISINOPRIL
     Dosage: 5 MG, 1X/DAY
     Route: 048
     Dates: start: 20191122
  47. LISINOPRIL [Concomitant]
     Active Substance: LISINOPRIL
     Dosage: 5 MG, 1X/DAY
     Route: 048
     Dates: start: 20200219
  48. LISINOPRIL [Concomitant]
     Active Substance: LISINOPRIL
     Dosage: 5 MG, 1X/DAY
     Route: 048
     Dates: start: 20201027
  49. LISINOPRIL [Concomitant]
     Active Substance: LISINOPRIL
     Dosage: 5 MG, 1X/DAY
     Route: 048
     Dates: start: 20210218
  50. LISINOPRIL [Concomitant]
     Active Substance: LISINOPRIL
     Dosage: 10 MG, 1X/DAY
     Route: 048
     Dates: start: 20210805
  51. MELOXICAM [Concomitant]
     Active Substance: MELOXICAM
     Dosage: 7.5 MG, 1X/DAY
     Route: 048
     Dates: start: 20190208
  52. METFORMIN HYDROCHLORIDE [Concomitant]
     Active Substance: METFORMIN HYDROCHLORIDE
     Dosage: 500 MG, 2X/DAY
     Route: 048
     Dates: start: 20150827
  53. METFORMIN HYDROCHLORIDE [Concomitant]
     Active Substance: METFORMIN HYDROCHLORIDE
     Dosage: 850 MG, 2X/DAY
     Route: 048
     Dates: start: 20151102
  54. METFORMIN HYDROCHLORIDE [Concomitant]
     Active Substance: METFORMIN HYDROCHLORIDE
     Dosage: 1000 MG, 2X/DAY
     Route: 048
     Dates: start: 20160107
  55. METFORMIN HYDROCHLORIDE [Concomitant]
     Active Substance: METFORMIN HYDROCHLORIDE
     Dosage: 1000 MG, 2X/DAY
     Route: 048
     Dates: start: 20160128
  56. METFORMIN HYDROCHLORIDE [Concomitant]
     Active Substance: METFORMIN HYDROCHLORIDE
     Dosage: 1000 MG, 2X/DAY
     Route: 048
     Dates: start: 20160413
  57. METFORMIN HYDROCHLORIDE [Concomitant]
     Active Substance: METFORMIN HYDROCHLORIDE
     Dosage: 1000 MG, 2X/DAY
     Route: 048
     Dates: start: 20160922
  58. METFORMIN HYDROCHLORIDE [Concomitant]
     Active Substance: METFORMIN HYDROCHLORIDE
     Dosage: 750 MG, 2X/DAY
     Route: 048
     Dates: start: 20180226
  59. METFORMIN HYDROCHLORIDE [Concomitant]
     Active Substance: METFORMIN HYDROCHLORIDE
     Dosage: 1000 MG, 2X/DAY
     Route: 048
     Dates: start: 20180413
  60. METFORMIN HYDROCHLORIDE [Concomitant]
     Active Substance: METFORMIN HYDROCHLORIDE
     Dosage: 1000 MG, 2X/DAY
     Route: 048
     Dates: start: 20180521
  61. METFORMIN HYDROCHLORIDE [Concomitant]
     Active Substance: METFORMIN HYDROCHLORIDE
     Dosage: 500 MG, 2X/DAY
     Route: 048
     Dates: start: 20191120
  62. METFORMIN HYDROCHLORIDE [Concomitant]
     Active Substance: METFORMIN HYDROCHLORIDE
     Dosage: 500 MG, 2X/DAY
     Route: 048
     Dates: start: 20200219
  63. METFORMIN HYDROCHLORIDE [Concomitant]
     Active Substance: METFORMIN HYDROCHLORIDE
     Dosage: 500 MG
  64. NIFEDIPINE [Concomitant]
     Active Substance: NIFEDIPINE
     Dosage: 30 MG, 1X/DAY
     Route: 048
     Dates: start: 20181022
  65. NIFEDIPINE [Concomitant]
     Active Substance: NIFEDIPINE
     Dosage: 30 MG, 1X/DAY
     Route: 048
     Dates: start: 20181205
  66. RESTASIS [Concomitant]
     Active Substance: CYCLOSPORINE
     Dosage: UNK, 2X/DAY (INSTILL 1 DROP INTO BOTH EYES)
     Dates: start: 20180806
  67. RESTASIS [Concomitant]
     Active Substance: CYCLOSPORINE
     Dosage: UNK, 2X/DAY (INSTILL 1 DROP INTO BOTH EYES)
     Dates: start: 20180921
  68. RESTASIS [Concomitant]
     Active Substance: CYCLOSPORINE
     Dosage: UNK, 2X/DAY (INSTILL 1 DROP INTO BOTH EYES)
     Dates: start: 20181024
  69. RESTASIS [Concomitant]
     Active Substance: CYCLOSPORINE
     Dosage: UNK, 2X/DAY (INSTILL 1 DROP INTO BOTH EYES)
     Dates: start: 20181205
  70. RESTASIS [Concomitant]
     Active Substance: CYCLOSPORINE
     Dosage: UNK, 2X/DAY (INSTILL 1 DROP INTO BOTH EYES)
     Dates: start: 20200826
  71. ROSUVASTATIN CALCIUM [Concomitant]
     Active Substance: ROSUVASTATIN CALCIUM
     Dosage: 40 MG, 1X/DAY
     Route: 048
     Dates: start: 20171108
  72. ROSUVASTATIN CALCIUM [Concomitant]
     Active Substance: ROSUVASTATIN CALCIUM
     Dosage: 40 MG, 1X/DAY
     Route: 048
     Dates: start: 20171204
  73. ROSUVASTATIN CALCIUM [Concomitant]
     Active Substance: ROSUVASTATIN CALCIUM
     Dosage: 40 MG, 1X/DAY
     Route: 048
     Dates: start: 20180206
  74. ROSUVASTATIN CALCIUM [Concomitant]
     Active Substance: ROSUVASTATIN CALCIUM
     Dosage: 10 MG, 1X/DAY
     Route: 048
     Dates: start: 20180529
  75. ROSUVASTATIN CALCIUM [Concomitant]
     Active Substance: ROSUVASTATIN CALCIUM
     Dosage: 10 MG, 1X/DAY
     Route: 048
     Dates: start: 20180925
  76. ROSUVASTATIN CALCIUM [Concomitant]
     Active Substance: ROSUVASTATIN CALCIUM
     Dosage: 10 MG, 1X/DAY
     Route: 048
     Dates: start: 20181205
  77. ROSUVASTATIN CALCIUM [Concomitant]
     Active Substance: ROSUVASTATIN CALCIUM
     Dosage: 40 MG, 1X/DAY
     Route: 048
     Dates: start: 20190408
  78. ROSUVASTATIN CALCIUM [Concomitant]
     Active Substance: ROSUVASTATIN CALCIUM
     Dosage: 40 MG, 1X/DAY
     Route: 048
     Dates: start: 20190812
  79. ROSUVASTATIN CALCIUM [Concomitant]
     Active Substance: ROSUVASTATIN CALCIUM
     Dosage: 40 MG, 1X/DAY
     Route: 048
     Dates: start: 20200106
  80. SHINGRIX [Concomitant]
     Active Substance: RECOMBINANT VARICELLA ZOSTER VIRUS (VZV) GLYCOPROTEIN E
     Dosage: 0.5 ML
     Route: 030
     Dates: start: 20201027
  81. LEVEMIR [Concomitant]
     Active Substance: INSULIN DETEMIR
     Dosage: 100 ML, 1X/DAY (INJECT 15 UNITS ONCE DAILY AT BEDTIME)
     Route: 058
     Dates: start: 20180924
  82. LEVEMIR [Concomitant]
     Active Substance: INSULIN DETEMIR
     Dosage: 100 ML, 1X/DAY (INJECT 15 UNITS ONCE DAILY AT BEDTIME)
     Route: 058
     Dates: start: 20181206
  83. LEVEMIR [Concomitant]
     Active Substance: INSULIN DETEMIR
     Dosage: 100 ML, 1X/DAY (INJECT 15 UNITS ONCE DAILY)
     Route: 058
     Dates: start: 20190301
  84. LEVEMIR [Concomitant]
     Active Substance: INSULIN DETEMIR
     Dosage: 100 ML, 1X/DAY (INJECT 15 UNITS ONCE DAILY)
     Route: 058
     Dates: start: 20190516
  85. LEVEMIR [Concomitant]
     Active Substance: INSULIN DETEMIR
     Dosage: 100 ML, 1X/DAY
     Route: 058
     Dates: start: 20190812
  86. FLUAD NOS [Concomitant]
     Active Substance: INFLUENZA VIRUS VACCINE
     Dosage: 0.5 ML
     Route: 030
     Dates: start: 20170907
  87. FLUAD NOS [Concomitant]
     Active Substance: INFLUENZA VIRUS VACCINE
     Dosage: 0.5 ML
     Route: 030
     Dates: start: 20180920
  88. FLUAD NOS [Concomitant]
     Active Substance: INFLUENZA VIRUS VACCINE
     Dosage: 0.5 ML
     Route: 030
     Dates: start: 20191005
  89. FLUAD NOS [Concomitant]
     Active Substance: INFLUENZA VIRUS VACCINE
     Dosage: 0.5 ML
     Route: 030
     Dates: start: 20200817
  90. FLUCONAZOLE [Concomitant]
     Active Substance: FLUCONAZOLE
     Dosage: 200 MG, 1X/DAY
     Route: 048
     Dates: start: 20170315
  91. FLUCONAZOLE [Concomitant]
     Active Substance: FLUCONAZOLE
     Dosage: 150 MG, 1X/DAY
     Route: 048
     Dates: start: 20180604
  92. FLUCONAZOLE [Concomitant]
     Active Substance: FLUCONAZOLE
     Dosage: 150 MG, 1X/DAY
     Route: 048
     Dates: start: 20180813
  93. FLUCONAZOLE [Concomitant]
     Active Substance: FLUCONAZOLE
     Dosage: 200 MG, 1X/DAY
     Route: 048
     Dates: start: 20180828
  94. FLUCONAZOLE [Concomitant]
     Active Substance: FLUCONAZOLE
     Dosage: 150 MG, 1X/DAY
     Route: 048
     Dates: start: 20181027
  95. LOSARTAN POTASSIUM [Concomitant]
     Active Substance: LOSARTAN POTASSIUM
     Dosage: 25 MG, 1X/DAY
     Route: 048
     Dates: start: 20180428
  96. LOSARTAN POTASSIUM [Concomitant]
     Active Substance: LOSARTAN POTASSIUM
     Dosage: 25 MG, 1X/DAY
     Route: 048
     Dates: start: 20180521
  97. LOSARTAN POTASSIUM [Concomitant]
     Active Substance: LOSARTAN POTASSIUM
     Dosage: 100 MG, 1X/DAY
     Route: 048
     Dates: start: 20180827
  98. PREVNAR 13 [Concomitant]
     Active Substance: PNEUMOCOCCAL 13-VALENT CONJUGATE VACCINE
     Dosage: 0.5 ML
     Route: 030
     Dates: start: 20180516
  99. GABAPENTIN [Concomitant]
     Active Substance: GABAPENTIN
     Dosage: 100 MG, 1X/DAY
     Route: 048
     Dates: start: 20180413
  100. FLUTICASONE [Concomitant]
     Active Substance: FLUTICASONE
     Dosage: 50 UG, 1X/DAY (INSTILL 2 SPRAYS INTO EACH NOSTRIL)
     Dates: start: 20171226
  101. MUPIROCIN [Concomitant]
     Active Substance: MUPIROCIN
     Dosage: UNK, 2X/DAY (APPLY TO AFFECTED AREA TWICE A DAY FOR 7 DAYS)
     Dates: start: 20171005
  102. BASAGLAR KWIKPEN [Concomitant]
     Active Substance: INSULIN GLARGINE
     Dosage: 100 ML (INJECT 15 UNITS AT BEDTIME)
     Dates: start: 20170317
  103. JANUMET [Concomitant]
     Active Substance: METFORMIN HYDROCHLORIDE\SITAGLIPTIN PHOSPHATE
     Dosage: UNK (50-500MG/ 1 TAB BY MOUTH TWICE A DAY WITH MEALS)
     Route: 048
     Dates: start: 20130816
  104. JANUMET [Concomitant]
     Active Substance: METFORMIN HYDROCHLORIDE\SITAGLIPTIN PHOSPHATE
     Dosage: UNK (50-500MG/ 1 TAB BY MOUTH TWICE A DAY WITH MEALS)
     Route: 048
     Dates: start: 20170307
  105. JANUMET [Concomitant]
     Active Substance: METFORMIN HYDROCHLORIDE\SITAGLIPTIN PHOSPHATE
     Dosage: UNK (50-1,000MG/ 1 TAB BY MOUTH TWICE A DAY WITH MEALS)
     Route: 048
     Dates: start: 20170317
  106. JANUMET [Concomitant]
     Active Substance: METFORMIN HYDROCHLORIDE\SITAGLIPTIN PHOSPHATE
     Dosage: UNK (50-1,000MG/ 1 TAB BY MOUTH TWICE A DAY WITH MEALS)
     Route: 048
     Dates: start: 20180220
  107. JANUMET [Concomitant]
     Active Substance: METFORMIN HYDROCHLORIDE\SITAGLIPTIN PHOSPHATE
     Dosage: UNK (50-1,000MG/ 1 TAB BY MOUTH TWICE A DAY WITH MEALS)
     Route: 048
     Dates: start: 20180406
  108. BYETTA [Concomitant]
     Active Substance: EXENATIDE
     Dosage: 5 UG, 2X/DAY
     Route: 058
     Dates: start: 20170317
  109. FENOFIBRATE [Concomitant]
     Active Substance: FENOFIBRATE
     Dosage: 134 MG (TAKE 1 CAPSULE BY MOUTH WITH A MEAL)
     Route: 048
     Dates: start: 20170316
  110. FENOFIBRATE [Concomitant]
     Active Substance: FENOFIBRATE
     Dosage: 134 MG (TAKE 1 CAPSULE BY MOUTH WITH A MEAL)
     Route: 048
     Dates: start: 20170417
  111. AMLODIPINE BESYLATE\BENAZEPRIL HYDROCHLORIDE [Concomitant]
     Active Substance: AMLODIPINE BESYLATE\BENAZEPRIL HYDROCHLORIDE
     Dosage: UNK, 1X/DAY (TAKE 1 CAPSULE BY MOUTH ONCE DAILY/5-10MG)
     Route: 048
     Dates: start: 20170316
  112. AMLODIPINE BESYLATE\BENAZEPRIL HYDROCHLORIDE [Concomitant]
     Active Substance: AMLODIPINE BESYLATE\BENAZEPRIL HYDROCHLORIDE
     Dosage: UNK, 1X/DAY (TAKE 1 CAPSULE BY MOUTH ONCE DAILY/5-10MG)
     Route: 048
     Dates: start: 20170427
  113. VITAMIN D2 [Concomitant]
     Active Substance: ERGOCALCIFEROL
     Dosage: 1.25 MG, WEEKLY
     Route: 048
     Dates: start: 20170316
  114. VITAMIN D2 [Concomitant]
     Active Substance: ERGOCALCIFEROL
     Dosage: 1.25 MG, WEEKLY
     Route: 048
     Dates: start: 20180604
  115. FLUARIX NOS [Concomitant]
     Active Substance: INFLUENZA VIRUS VACCINE
     Dosage: UNK (INJECT 0.5 MILLILITER INTRAMUSCULARLY)
     Route: 030
     Dates: start: 20160912
  116. BRILINTA [Concomitant]
     Active Substance: TICAGRELOR
     Dosage: 60 MG, 2X/DAY
     Route: 048
     Dates: start: 20160715
  117. BRILINTA [Concomitant]
     Active Substance: TICAGRELOR
     Dosage: 60 MG, 2X/DAY
     Route: 048
     Dates: start: 20170213
  118. PRAVASTATIN SODIUM [Concomitant]
     Active Substance: PRAVASTATIN SODIUM
     Dosage: 20 MG, 1X/DAY
     Route: 048
     Dates: start: 20150911
  119. PRAVASTATIN SODIUM [Concomitant]
     Active Substance: PRAVASTATIN SODIUM
     Dosage: 40 MG (TAKE 1 TABLET BY MOUTH AT BEDTIME)
     Route: 048
     Dates: start: 20160714
  120. PRAVASTATIN SODIUM [Concomitant]
     Active Substance: PRAVASTATIN SODIUM
     Dosage: 20 MG, 1X/DAY
     Route: 048
     Dates: start: 20160714
  121. PRAVASTATIN SODIUM [Concomitant]
     Active Substance: PRAVASTATIN SODIUM
     Dosage: 40 MG (TAKE 1 TABLET BY MOUTH AT BEDTIME)
     Route: 048
     Dates: start: 20160920
  122. TERCONAZOLE [Concomitant]
     Active Substance: TERCONAZOLE
     Dosage: UNK, 1X/DAY (ONCE DAILY AT BEDTIME FOR 7 DAYS)
     Dates: start: 20160331
  123. TERCONAZOLE [Concomitant]
     Active Substance: TERCONAZOLE
     Dosage: UNK, 1X/DAY (ONCE DAILY AT BEDTIME FOR 7 DAYS)
     Dates: start: 20160413
  124. TERCONAZOLE [Concomitant]
     Active Substance: TERCONAZOLE
     Dosage: UNK, 1X/DAY (ONCE DAILY AT BEDTIME FOR 7 DAYS)
     Dates: start: 20160428
  125. TERCONAZOLE [Concomitant]
     Active Substance: TERCONAZOLE
     Dosage: UNK, 1X/DAY (ONCE DAILY AT BEDTIME FOR 7 DAYS)
     Dates: start: 20160511
  126. GLIMEPIRIDE [Concomitant]
     Active Substance: GLIMEPIRIDE
     Dosage: UNK, 1X/DAY (TAKE 1 TABLET ONCE DAILY)
     Route: 048
     Dates: start: 20151109
  127. GLIMEPIRIDE [Concomitant]
     Active Substance: GLIMEPIRIDE
     Dosage: UNK, 1X/DAY (TAKE 1 TABLET ONCE DAILY)
     Route: 048
     Dates: start: 20160107
  128. GLIMEPIRIDE [Concomitant]
     Active Substance: GLIMEPIRIDE
     Dosage: UNK, 1X/DAY (TAKE 1 TABLET ONCE DAILY)
     Route: 048
     Dates: start: 20160128
  129. GLIMEPIRIDE [Concomitant]
     Active Substance: GLIMEPIRIDE
     Dosage: UNK, 1X/DAY (TAKE 1 TABLET ONCE DAILY)
     Dates: start: 20160413
  130. GLIMEPIRIDE [Concomitant]
     Active Substance: GLIMEPIRIDE
     Dosage: UNK, 1X/DAY (TAKE 1 TABLET ONCE DAILY)
     Route: 048
     Dates: start: 20160922
  131. OXYBUTYNIN CHLORIDE [Concomitant]
     Active Substance: OXYBUTYNIN CHLORIDE
     Dosage: UNK, 1X/DAY (TAKE 1 TABLET BY MOUTH ONCE DAILY FOR 2 WEEKS)
     Route: 048
     Dates: start: 20151109
  132. CILOSTAZOL [Concomitant]
     Active Substance: CILOSTAZOL
     Dosage: 50 MG, 2X/DAY
     Route: 048
     Dates: start: 20151013
  133. CILOSTAZOL [Concomitant]
     Active Substance: CILOSTAZOL
     Dosage: 50 MG, 2X/DAY
     Route: 048
     Dates: start: 20151119
  134. CILOSTAZOL [Concomitant]
     Active Substance: CILOSTAZOL
     Dosage: 50 MG, 2X/DAY
     Route: 048
     Dates: start: 20160215
  135. CILOSTAZOL [Concomitant]
     Active Substance: CILOSTAZOL
     Dosage: 50 MG, 2X/DAY
     Route: 048
     Dates: start: 20160315
  136. LETROZOLE [Concomitant]
     Active Substance: LETROZOLE
     Dosage: 2.5 MG, 1X/DAY
     Route: 048
     Dates: start: 20130202
  137. LETROZOLE [Concomitant]
     Active Substance: LETROZOLE
     Dosage: 2.5 MG, 1X/DAY
     Route: 048
     Dates: start: 20130315
  138. LETROZOLE [Concomitant]
     Active Substance: LETROZOLE
     Dosage: 2.5 MG, 1X/DAY
     Route: 048
     Dates: start: 20130412
  139. LETROZOLE [Concomitant]
     Active Substance: LETROZOLE
     Dosage: 2.5 MG, 1X/DAY
     Route: 048
     Dates: start: 20130510
  140. LETROZOLE [Concomitant]
     Active Substance: LETROZOLE
     Dosage: 2.5 MG, 1X/DAY
     Route: 048
     Dates: start: 20130517
  141. LETROZOLE [Concomitant]
     Active Substance: LETROZOLE
     Dosage: 2.5 MG, 1X/DAY
     Route: 048
     Dates: start: 20130921
  142. LETROZOLE [Concomitant]
     Active Substance: LETROZOLE
     Dosage: 2.5 MG, 1X/DAY
     Route: 048
     Dates: start: 20140131
  143. LETROZOLE [Concomitant]
     Active Substance: LETROZOLE
     Dosage: 2.5 MG, 1X/DAY
     Route: 048
     Dates: start: 20140306
  144. LETROZOLE [Concomitant]
     Active Substance: LETROZOLE
     Dosage: 2.5 MG, 1X/DAY
     Route: 048
     Dates: start: 20140412
  145. ZOSTAVAX [Concomitant]
     Active Substance: VARICELLA-ZOSTER VIRUS STRAIN OKA/MERCK LIVE ANTIGEN
     Dosage: UNK (INJECT CONTENTS OF 1 VIAL)
     Route: 058
     Dates: start: 20130816
  146. UREA [Concomitant]
     Active Substance: UREA
     Dosage: UNK, 2X/DAY
     Dates: start: 20130202
  147. UREA [Concomitant]
     Active Substance: UREA
     Dosage: UNK, 2X/DAY
     Dates: start: 20130315
  148. CLOPIDOGREL [Concomitant]
     Active Substance: CLOPIDOGREL BISULFATE
     Dosage: 75 MG, 1X/DAY
     Route: 048
     Dates: start: 20151013
  149. FLUCELVAX NOS [Concomitant]
     Active Substance: INFLUENZA A VIRUS A/BRISBANE/10/2010 (H1N1) ANTIGEN (MDCK CELL DERIVED, PROPIOLACTONE INACTIVATED)\I
     Dosage: UNK(INJECT 0.5 MILLILITER INTRAMUSCULARLY)
     Route: 030
     Dates: start: 20150915
  150. IBUPROFEN [Concomitant]
     Active Substance: IBUPROFEN
     Indication: Pain
     Dosage: 400 MG (TAKE 1 TABLET BY MOUTH EVERY 6 HOURS )
     Route: 048
     Dates: start: 20141027
  151. AFLURIA NOS [Concomitant]
     Active Substance: INFLUENZA VIRUS VACCINE TRIVALENT TYPE A+B AFLURIA
     Dosage: UNK (INJECT 0.5MILILITER INTRAMUSCULARLY )
     Route: 030
     Dates: start: 20140210
  152. SIMVASTATIN [Concomitant]
     Active Substance: SIMVASTATIN
     Dosage: 40 MG, 1X/DAY
     Route: 048
     Dates: start: 20160211
  153. SIMVASTATIN [Concomitant]
     Active Substance: SIMVASTATIN
     Dosage: 40 MG, 1X/DAY
     Route: 048
     Dates: start: 20170211
  154. SIMVASTATIN [Concomitant]
     Active Substance: SIMVASTATIN
     Dosage: 40 MG, 1X/DAY
     Route: 048
     Dates: start: 20170427
  155. METHYLPREDNISOLONE [Concomitant]
     Active Substance: METHYLPREDNISOLONE
     Dosage: 4 MG
     Dates: start: 20170124
  156. FLUTICASONE PROPIONATE [Concomitant]
     Active Substance: FLUTICASONE PROPIONATE
     Dosage: 50 UG (INSTILL 2 SPRAYS INTO EACH NOSTRIL)
     Dates: start: 20171108
  157. FLUTICASONE PROPIONATE [Concomitant]
     Active Substance: FLUTICASONE PROPIONATE
     Dosage: 50 UG (INSTILL 2 SPRAYS INTO EACH NOSTRIL)
     Dates: start: 20180206
  158. NOVOLOG [Concomitant]
     Active Substance: INSULIN ASPART
     Dosage: 100 ML, 3X/DAY
     Route: 058
     Dates: start: 20180220
  159. BYDUREON [Concomitant]
     Active Substance: EXENATIDE
     Dosage: 2 MG, WEEKLY
     Dates: start: 20180605
  160. PNEUMOVAX 23 [Concomitant]
     Active Substance: PNEUMOCOCCAL VACCINE, POLYVALENT 23
     Dosage: 0.5 ML
     Route: 030
     Dates: start: 20191005
  161. ROSUVASTATIN [Concomitant]
     Active Substance: ROSUVASTATIN
     Dosage: 5 MG
  162. TRIAMCINOLONE [Concomitant]
     Active Substance: TRIAMCINOLONE
     Dosage: UNK, 2X/DAY (APPLY TOPICALLY TO AFFECTED AREAS TWICE A DAY FOR 5-7 DAYS)
     Dates: start: 20191018
  163. LOSARTAN [Concomitant]
     Active Substance: LOSARTAN
     Dosage: 25 MG
  164. FLUZONE HIGH-DOSE NOS [Concomitant]
     Active Substance: INFLUENZA A VIRUS A/CALIFORNIA/7/2009 X-179A (H1N1) ANTIGEN (FORMALDEHYDE INACTIVATED)\INFLUENZA A V
     Dosage: 0.7 ML
     Route: 030
     Dates: start: 20210914
  165. METOPROLOL [Concomitant]
     Active Substance: METOPROLOL
     Dosage: 50 MG, 1X/DAY
     Route: 048
     Dates: start: 20210408
  166. METOPROLOL [Concomitant]
     Active Substance: METOPROLOL
     Dosage: 100 MG, 1X/DAY
     Route: 048
     Dates: start: 20210506

REACTIONS (2)
  - Breast cancer metastatic [Not Recovered/Not Resolved]
  - Diabetes mellitus [Not Recovered/Not Resolved]
